FAERS Safety Report 7543757-3 (Version None)
Quarter: 2011Q2

REPORT INFORMATION
  Report Type: 
  Country: None (occurrence: None)
  Receive Date: 20110613
  Receipt Date: 20040611
  Transmission Date: 20111010
  Serious: Yes (Hospitalization)
  Sender: FDA-Public Use
  Company Number: PHBS2003JP06414

PATIENT
  Sex: Male

DRUGS (7)
  1. BUFFERIN [Suspect]
     Indication: CEREBRAL INFARCTION
     Dosage: 81 MG, QD
     Route: 048
     Dates: end: 20030402
  2. FLIVAS [Suspect]
     Indication: PROSTATIC DISORDER
     Dosage: 50 MG, QD
     Route: 048
     Dates: start: 20021220, end: 20030402
  3. DIOVAN [Suspect]
     Dosage: 80 MG, QD
     Route: 048
     Dates: start: 20030527
  4. NORVASC [Suspect]
     Indication: HYPERTENSION
     Dosage: 5 MG, QD
     Route: 048
     Dates: end: 20030402
  5. RESMIT [Suspect]
     Indication: SLEEP DISORDER
     Dosage: 5 MG, QD
     Route: 048
     Dates: end: 20030402
  6. DIOVAN [Suspect]
     Indication: HYPERTENSION
     Dosage: 80 MG, QD
     Route: 048
     Dates: start: 20030110, end: 20030402
  7. ISOSORBIDE DINITRATE [Suspect]
     Indication: ANGINA PECTORIS
     Dosage: 40 MG, QD
     Route: 048
     Dates: end: 20030402

REACTIONS (5)
  - CEREBRAL INFARCTION [None]
  - ASTHENIA [None]
  - DYSARTHRIA [None]
  - HEMIPLEGIA [None]
  - HYPOAESTHESIA [None]
